FAERS Safety Report 4978962-3 (Version None)
Quarter: 2006Q2

REPORT INFORMATION
  Report Type: 
  Country: None (occurrence: None)
  Receive Date: 20060419
  Receipt Date: 20060419
  Transmission Date: 20061013
  Serious: Yes (Other)
  Sender: FDA-Public Use
  Company Number: None

PATIENT
  Age: 68 Year
  Sex: Male
  Weight: 89.8122 kg

DRUGS (2)
  1. CIALIS [Suspect]
     Indication: ARTHRALGIA
     Dosage: PO  (DURATION: SEVERAL MOS)
     Route: 048
  2. CIALIS [Suspect]
     Indication: MYALGIA
     Dosage: PO  (DURATION: SEVERAL MOS)
     Route: 048

REACTIONS (2)
  - ARTHRALGIA [None]
  - MYALGIA [None]
